FAERS Safety Report 7114235-0 (Version None)
Quarter: 2010Q4

REPORT INFORMATION
  Report Type: 
  Country: None (occurrence: None)
  Receive Date: 20101119
  Receipt Date: 20101110
  Transmission Date: 20110411
  Serious: Yes (Other)
  Sender: FDA-Public Use
  Company Number: US-ROCHE-740964

PATIENT
  Sex: Female

DRUGS (2)
  1. XELODA [Suspect]
     Dosage: TWO WEEKS ON, ONE WEEK OFF
     Route: 048
     Dates: start: 20091029, end: 20100727
  2. TYKERB [Suspect]
     Route: 048
     Dates: start: 20091029, end: 20100727

REACTIONS (2)
  - OESOPHAGEAL PERFORATION [None]
  - OESOPHAGEAL STENOSIS [None]
